FAERS Safety Report 12309085 (Version 3)
Quarter: 2021Q4

REPORT INFORMATION
  Report Type: Other
  Country: IN (occurrence: None)
  Receive Date: 20160427
  Receipt Date: 20211221
  Transmission Date: 20220303
  Serious: Yes (Death, Hospitalization)
  Sender: FDA-Public Use
  Company Number: IN-ROCHE-1743612

PATIENT
  Age: 69 Year
  Sex: Female

DRUGS (1)
  1. PERJETA [Suspect]
     Active Substance: PERTUZUMAB
     Indication: Breast cancer
     Route: 042
     Dates: start: 20160329

REACTIONS (5)
  - Death [Fatal]
  - Electrolyte imbalance [Recovering/Resolving]
  - Blood calcium decreased [Unknown]
  - Blood phosphorus decreased [Unknown]
  - Blood sodium decreased [Unknown]

NARRATIVE: CASE EVENT DATE: 20160329
